FAERS Safety Report 6379843-3 (Version None)
Quarter: 2009Q3

REPORT INFORMATION
  Report Type: 
  Country: None (occurrence: None)
  Receive Date: 20090928
  Receipt Date: 20090916
  Transmission Date: 20100115
  Serious: Yes (Hospitalization, Disabling, Other)
  Sender: FDA-Public Use
  Company Number: GB-ELI_LILLY_AND_COMPANY-GB200610005272

PATIENT
  Sex: Female
  Weight: 44 kg

DRUGS (10)
  1. PROZAC [Suspect]
     Dosage: 60 MG, DAILY (1/D)
     Route: 048
  2. PROZAC [Suspect]
     Dosage: 80 MG, DAILY (1/D)
  3. TRIFLUOPERAZINE HCL [Concomitant]
     Dosage: 10 MG, DAILY (1/D)
     Route: 048
  4. CEFOTAXIME [Concomitant]
     Dosage: 750 MG, 2/D
     Route: 042
     Dates: start: 20060926, end: 20060927
  5. DIAZEPAM [Concomitant]
     Dosage: 5 MG, AS NEEDED
     Route: 048
     Dates: start: 20060927
  6. FOLIC ACID [Concomitant]
     Dosage: 5 MG, DAILY (1/D)
     Route: 048
     Dates: start: 20060927
  7. PABRINEX [Concomitant]
     Route: 042
     Dates: start: 20060926, end: 20060927
  8. THIAMINE HCL [Concomitant]
     Dosage: 100 MG, 3/D
     Route: 048
     Dates: start: 20060927
  9. OMEPRAZOLE [Concomitant]
     Indication: TUBULOINTERSTITIAL NEPHRITIS
     Dosage: 40 MG
  10. RISEDRONATE SODIUM [Concomitant]

REACTIONS (10)
  - ASTHENIA [None]
  - CEREBRAL ATROPHY [None]
  - CONFUSIONAL STATE [None]
  - DEHYDRATION [None]
  - FEELING ABNORMAL [None]
  - HYPOPHAGIA [None]
  - TUBULOINTERSTITIAL NEPHRITIS [None]
  - URINARY TRACT INFECTION [None]
  - VITAMIN B COMPLEX DEFICIENCY [None]
  - WEIGHT DECREASED [None]
